FAERS Safety Report 15869687 (Version 2)
Quarter: 2019Q1

REPORT INFORMATION
  Report Type: Report from Study
  Country: AU (occurrence: AU)
  Receive Date: 20190125
  Receipt Date: 20190306
  Transmission Date: 20190417
  Serious: Yes (Hospitalization, Other)
  Sender: FDA-Public Use
  Company Number: AU-REGENERON PHARMACEUTICALS, INC.-2019-11813

PATIENT

DRUGS (1)
  1. EYLEA [Suspect]
     Active Substance: AFLIBERCEPT
     Indication: NEOVASCULAR AGE-RELATED MACULAR DEGENERATION
     Dosage: Q6WK, BOTH EYES, UNKNOWN TOTAL INJECTIONS RECEIVED
     Route: 031

REACTIONS (5)
  - Foot fracture [Recovered/Resolved with Sequelae]
  - Injection site pain [Recovered/Resolved]
  - Hypertension [Recovered/Resolved]
  - Circulatory collapse [Unknown]
  - Blindness transient [Recovered/Resolved]

NARRATIVE: CASE EVENT DATE: 201808
